FAERS Safety Report 20209014 (Version 1)
Quarter: 2021Q4

REPORT INFORMATION
  Report Type: Spontaneous
  Country: IT (occurrence: IT)
  Receive Date: 20211220
  Receipt Date: 20211220
  Transmission Date: 20220304
  Serious: Yes (Other)
  Sender: FDA-Public Use
  Company Number: IT-ANIPHARMA-2021-IT-000244

PATIENT
  Age: 48 Year
  Sex: Female

DRUGS (1)
  1. ALPRAZOLAM [Suspect]
     Active Substance: ALPRAZOLAM
     Indication: Anxiety

REACTIONS (3)
  - Sarcomatoid carcinoma [Recovered/Resolved]
  - Bladder cancer [Recovered/Resolved]
  - Drug abuse [Unknown]
